FAERS Safety Report 19471779 (Version 1)
Quarter: 2021Q2

REPORT INFORMATION
  Report Type: Report from Study
  Country: US (occurrence: US)
  Receive Date: 20210629
  Receipt Date: 20210629
  Transmission Date: 20210717
  Serious: Yes (Hospitalization)
  Sender: FDA-Public Use
  Company Number: US-BIOVITRUM-2021US4855

PATIENT
  Age: 59 Year
  Sex: Male

DRUGS (2)
  1. KINERET [Suspect]
     Active Substance: ANAKINRA
     Route: 058
  2. KINERET [Suspect]
     Active Substance: ANAKINRA
     Indication: RHEUMATOID ARTHRITIS
     Dosage: ONCE EVERY 8 HOURS
     Route: 058
     Dates: start: 20210306

REACTIONS (5)
  - Off label use [Unknown]
  - Liver function test abnormal [Recovered/Resolved]
  - Immune system disorder [Unknown]
  - Renal function test abnormal [Recovered/Resolved]
  - Somnolence [Unknown]

NARRATIVE: CASE EVENT DATE: 20210306
